FAERS Safety Report 4330370-4 (Version None)
Quarter: 2004Q2

REPORT INFORMATION
  Report Type: 
  Country: None (occurrence: None)
  Receive Date: 20040401
  Receipt Date: 20040401
  Transmission Date: 20050107
  Serious: Yes (Life-Threatening)
  Sender: FDA-Public Use
  Company Number: None

PATIENT
  Age: 64 Year
  Sex: Male
  Weight: 116 kg

DRUGS (16)
  1. CEREBYX [Suspect]
     Indication: CHRONIC OBSTRUCTIVE AIRWAYS DISEASE
     Dosage: 2100 MG PE 1 X ONLY INTRAVENOUS
     Route: 042
     Dates: start: 20040331, end: 20040331
  2. CEREBYX [Suspect]
     Indication: DYSPNOEA
     Dosage: 2100 MG PE 1 X ONLY INTRAVENOUS
     Route: 042
     Dates: start: 20040331, end: 20040331
  3. ALBUTEROL [Concomitant]
  4. ASPIRIN [Concomitant]
  5. CLONAZEPAM [Concomitant]
  6. DOCUSATE [Concomitant]
  7. QVAR INHALER [Concomitant]
  8. ENOXAPARIN SODIUM [Concomitant]
  9. ESOMEPRAZOLE [Concomitant]
  10. IPRATROPIUM BROMIDE [Concomitant]
  11. LEVOFLOXACIN [Concomitant]
  12. ZOSYN [Concomitant]
  13. PREDNISONE [Concomitant]
  14. WARFARIN SODIUM [Concomitant]
  15. DILTIAZEM [Concomitant]
  16. FUROSEMIDE [Concomitant]

REACTIONS (1)
  - HYPOTENSION [None]
